FAERS Safety Report 19349713 (Version 1)
Quarter: 2021Q2

REPORT INFORMATION
  Report Type: Spontaneous
  Country: US (occurrence: US)
  Receive Date: 20210601
  Receipt Date: 20210601
  Transmission Date: 20210717
  Serious: Yes (Other)
  Sender: FDA-Public Use
  Company Number: None

PATIENT
  Age: 21 Year
  Weight: 63 kg

DRUGS (6)
  1. HEATHER BIRTH CONTROL [Concomitant]
  2. WELLBUTRIN XL [Suspect]
     Active Substance: BUPROPION HYDROCHLORIDE
     Indication: DEPRESSION
     Dosage: ?          QUANTITY:1 TABLET(S);?
     Route: 048
     Dates: start: 20200826, end: 20210504
  3. TESTOSTERONE. [Concomitant]
     Active Substance: TESTOSTERONE
  4. PROZAC [Concomitant]
     Active Substance: FLUOXETINE HYDROCHLORIDE
  5. EMERGENCY INHALER [Concomitant]
     Active Substance: UNSPECIFIED INGREDIENT
  6. HYDROXYZINE PRN [Concomitant]

REACTIONS (1)
  - Amnesia [None]

NARRATIVE: CASE EVENT DATE: 20210504
